FAERS Safety Report 18952500 (Version 2)
Quarter: 2021Q1

REPORT INFORMATION
  Report Type: Spontaneous
  Country: IT (occurrence: IT)
  Receive Date: 20210301
  Receipt Date: 20210304
  Transmission Date: 20210420
  Serious: Yes (Other)
  Sender: FDA-Public Use
  Company Number: IT-AUROBINDO-AUR-APL-2021-007853

PATIENT
  Age: 54 Year
  Sex: Male

DRUGS (2)
  1. IMATINIB. [Suspect]
     Active Substance: IMATINIB MESYLATE
     Dosage: 400 MILLIGRAM, ONCE A DAY, QD(1 WEEKS )
     Route: 048
  2. IMATINIB. [Suspect]
     Active Substance: IMATINIB MESYLATE
     Indication: GASTROINTESTINAL STROMAL TUMOUR
     Dosage: 400 MILLIGRAM, FOUR TIMES/DAY
     Route: 048

REACTIONS (2)
  - Proctitis [Recovering/Resolving]
  - Neutropenia [Recovering/Resolving]
